FAERS Safety Report 18973171 (Version 2)
Quarter: 2021Q1

REPORT INFORMATION
  Report Type: Spontaneous
  Country: JP (occurrence: JP)
  Receive Date: 20210305
  Receipt Date: 20210322
  Transmission Date: 20210420
  Serious: Yes (Other)
  Sender: FDA-Public Use
  Company Number: JP-PFIZER INC-2021211953

PATIENT
  Age: 43 Year
  Sex: Male

DRUGS (3)
  1. AMBISOME [Suspect]
     Active Substance: AMPHOTERICIN B
     Indication: BACTERIAL INFECTION
  2. AMBISOME [Suspect]
     Active Substance: AMPHOTERICIN B
     Indication: FUNGAL INFECTION
     Dosage: UNK, BETWEEN ABOUT 20 DAYS AND 35 DAYS AFTER THE START OF AML TREATMENT
     Route: 041
  3. MEROPENEM. [Suspect]
     Active Substance: MEROPENEM
     Dosage: UNK, BETWEEN ABOUT 10 DAYS AND 45 DAYS AFTER THE START OF AML TREATMENT
     Route: 041

REACTIONS (1)
  - Myelosuppression [Recovering/Resolving]
